FAERS Safety Report 4873192-8 (Version None)
Quarter: 2005Q4

REPORT INFORMATION
  Report Type: 
  Country: None (occurrence: None)
  Receive Date: 20051201
  Receipt Date: 20050803
  Transmission Date: 20060501
  Serious: No
  Sender: FDA-Public Use
  Company Number: 2005PV000880

PATIENT

DRUGS (10)
  1. BYETTA [Suspect]
     Indication: DIABETES MELLITUS NON-INSULIN-DEPENDENT
     Dosage: 5 MCG, BID, SC
     Route: 058
     Dates: start: 20050802, end: 20050906
  2. BYETTA [Suspect]
     Indication: DIABETES MELLITUS NON-INSULIN-DEPENDENT
     Dosage: 5 MCG, BID, SC
     Route: 058
     Dates: start: 20050907, end: 20050927
  3. GLUCOPHAGE XR [Concomitant]
  4. LIPITOR [Concomitant]
  5. EZETIMIBE [Concomitant]
  6. WELLBUTRIN [Concomitant]
  7. DIURETICS [Concomitant]
  8. ALTACE [Concomitant]
  9. ASPIRIN [Concomitant]
  10. VITAMINS [Concomitant]

REACTIONS (4)
  - INJECTION SITE BRUISING [None]
  - INJECTION SITE PAIN [None]
  - MALAISE [None]
  - NAUSEA [None]
